FAERS Safety Report 6204940-2 (Version None)
Quarter: 2009Q2

REPORT INFORMATION
  Report Type: 
  Country: None (occurrence: None)
  Receive Date: 20090526
  Receipt Date: 20090513
  Transmission Date: 20091009
  Serious: Yes (Other)
  Sender: FDA-Public Use
  Company Number: 2009AL003422

PATIENT
  Age: 57 Year
  Sex: Female

DRUGS (2)
  1. METFORMIN HYDROCHLORIDE [Suspect]
     Indication: DIABETES MELLITUS
     Dosage: 500 MG
     Dates: start: 20060801
  2. LEVOTHYROXINE [Concomitant]

REACTIONS (6)
  - DRY SKIN [None]
  - FEELING COLD [None]
  - FOOD CRAVING [None]
  - HAIR DISORDER [None]
  - IRRITABILITY [None]
  - UNEVALUABLE EVENT [None]
